FAERS Safety Report 23457580 (Version 1)
Quarter: 2024Q1

REPORT INFORMATION
  Report Type: Spontaneous
  Country: US (occurrence: None)
  Receive Date: 20240129
  Receipt Date: 20240129
  Transmission Date: 20240410
  Serious: Yes (Hospitalization)
  Sender: FDA-Public Use
  Company Number: None

PATIENT
  Age: 79 Year
  Sex: Female

DRUGS (1)
  1. TAVNEOS [Suspect]
     Active Substance: AVACOPAN

REACTIONS (10)
  - Dry mouth [None]
  - Asthenia [None]
  - Fatigue [None]
  - Fall [None]
  - Weight increased [None]
  - Dizziness [None]
  - Urinary retention [None]
  - Peripheral swelling [None]
  - Peripheral swelling [None]
  - Blood pressure increased [None]

NARRATIVE: CASE EVENT DATE: 20240129
